FAERS Safety Report 16638646 (Version 2)
Quarter: 2019Q4

REPORT INFORMATION
  Report Type: Spontaneous
  Country: US (occurrence: US)
  Receive Date: 20190726
  Receipt Date: 20191122
  Transmission Date: 20200122
  Serious: Yes (Other)
  Sender: FDA-Public Use
  Company Number: US-ASTRAZENECA-2019SF06258

PATIENT
  Age: 77 Year
  Sex: Female
  Weight: 83.9 kg

DRUGS (47)
  1. MAGNESIUM OXIDE. [Concomitant]
     Active Substance: MAGNESIUM OXIDE
     Indication: MAGNESIUM DEFICIENCY
  2. BIAXIN [Concomitant]
     Active Substance: CLARITHROMYCIN
  3. FEMARA [Concomitant]
     Active Substance: LETROZOLE
  4. OMEPRAZOLE. [Suspect]
     Active Substance: OMEPRAZOLE
     Indication: GASTROOESOPHAGEAL REFLUX DISEASE
     Route: 065
     Dates: start: 201609, end: 201704
  5. OMEPRAZOLE. [Suspect]
     Active Substance: OMEPRAZOLE
     Indication: GASTROOESOPHAGEAL REFLUX DISEASE
     Route: 048
  6. ALENDRONATE [Concomitant]
     Active Substance: ALENDRONATE SODIUM
  7. PRILOSEC OTC [Suspect]
     Active Substance: OMEPRAZOLE MAGNESIUM
     Indication: GASTROOESOPHAGEAL REFLUX DISEASE
     Route: 048
     Dates: start: 201311, end: 201502
  8. OMEPRAZOLE. [Suspect]
     Active Substance: OMEPRAZOLE
     Indication: GASTROOESOPHAGEAL REFLUX DISEASE
     Route: 065
     Dates: start: 201503, end: 201603
  9. ACYCLOVIR. [Concomitant]
     Active Substance: ACYCLOVIR
     Indication: VIRAL INFECTION
  10. TRAMADOL/APAP [Concomitant]
     Active Substance: ACETAMINOPHEN\TRAMADOL
     Indication: PAIN
  11. METOCLOPRAM [Concomitant]
     Active Substance: METOCLOPRAMIDE
  12. ARIMIDEX [Concomitant]
     Active Substance: ANASTROZOLE
  13. VIGAMOX [Concomitant]
     Active Substance: MOXIFLOXACIN HYDROCHLORIDE
  14. AZITHROMYCIN ANHYDROUS. [Concomitant]
     Active Substance: AZITHROMYCIN ANHYDROUS
  15. PREVACID [Suspect]
     Active Substance: LANSOPRAZOLE
     Indication: GASTROOESOPHAGEAL REFLUX DISEASE
     Route: 065
     Dates: start: 200311, end: 200401
  16. RANITIDINE. [Concomitant]
     Active Substance: RANITIDINE
  17. SIMVASTATIN. [Concomitant]
     Active Substance: SIMVASTATIN
  18. INDOMETHACIN. [Concomitant]
     Active Substance: INDOMETHACIN
  19. PREVACID [Suspect]
     Active Substance: LANSOPRAZOLE
     Indication: GASTROOESOPHAGEAL REFLUX DISEASE
     Route: 048
  20. ALBUTEROL. [Concomitant]
     Active Substance: ALBUTEROL
     Indication: ASTHMA
  21. FUROSEMIDE. [Concomitant]
     Active Substance: FUROSEMIDE
     Indication: FLUID RETENTION
  22. ASPIRIN. [Concomitant]
     Active Substance: ASPIRIN
     Indication: CARDIAC DISORDER
  23. CEFTIN [Concomitant]
     Active Substance: CEFUROXIME AXETIL
  24. CIPROFLOXACIN. [Concomitant]
     Active Substance: CIPROFLOXACIN
  25. BEXTRA [Concomitant]
     Active Substance: VALDECOXIB
     Indication: GASTROOESOPHAGEAL REFLUX DISEASE
     Route: 065
     Dates: start: 2003, end: 2014
  26. PRILOSEC OTC [Suspect]
     Active Substance: OMEPRAZOLE MAGNESIUM
     Indication: GASTROOESOPHAGEAL REFLUX DISEASE
     Dosage: GENERIC
     Route: 065
     Dates: start: 2018
  27. PREVACID [Suspect]
     Active Substance: LANSOPRAZOLE
     Indication: GASTROOESOPHAGEAL REFLUX DISEASE
     Route: 065
     Dates: start: 2003, end: 2014
  28. GLUCOSAMINE [Concomitant]
     Active Substance: GLUCOSAMINE
     Indication: ARTHRALGIA
  29. PREMARIN [Concomitant]
     Active Substance: ESTROGENS, CONJUGATED
  30. NASACORT [Concomitant]
     Active Substance: TRIAMCINOLONE ACETONIDE
  31. GUAIFENEX [Concomitant]
     Active Substance: GUAIFENESIN\PHENYLEPHRINE\PHENYLPROPANOLAMINE
  32. CELEBREX [Concomitant]
     Active Substance: CELECOXIB
  33. BENZONATATE. [Concomitant]
     Active Substance: BENZONATATE
  34. DIOVAN [Concomitant]
     Active Substance: VALSARTAN
  35. MELOXICAM. [Concomitant]
     Active Substance: MELOXICAM
  36. FLUTICASONE. [Concomitant]
     Active Substance: FLUTICASONE
  37. ONDANSETRON [Concomitant]
     Active Substance: ONDANSETRON
  38. OXYCODONE [Concomitant]
     Active Substance: OXYCODONE
     Indication: PAIN
  39. LISINOPRIL. [Concomitant]
     Active Substance: LISINOPRIL
  40. BEXTRA [Concomitant]
     Active Substance: VALDECOXIB
     Indication: GASTROOESOPHAGEAL REFLUX DISEASE
     Route: 065
     Dates: start: 200311, end: 200401
  41. PRILOSEC OTC [Suspect]
     Active Substance: OMEPRAZOLE MAGNESIUM
     Indication: GASTROOESOPHAGEAL REFLUX DISEASE
     Route: 048
     Dates: start: 2003, end: 2014
  42. MEDROXYPROG [Concomitant]
  43. HISTINEX [Concomitant]
  44. QUALAQUIN [Concomitant]
     Active Substance: QUININE SULFATE
  45. PREDNISOLONE ACETATE. [Concomitant]
     Active Substance: PREDNISOLONE ACETATE
  46. LEVOFLOXACIN. [Concomitant]
     Active Substance: LEVOFLOXACIN
  47. BEXTRA [Concomitant]
     Active Substance: VALDECOXIB
     Indication: GASTROOESOPHAGEAL REFLUX DISEASE
     Route: 048

REACTIONS (2)
  - Renal failure [Not Recovered/Not Resolved]
  - Chronic kidney disease [Not Recovered/Not Resolved]

NARRATIVE: CASE EVENT DATE: 2016
